FAERS Safety Report 7019572-6 (Version None)
Quarter: 2010Q3

REPORT INFORMATION
  Report Type: 
  Country: None (occurrence: None)
  Receive Date: 20100928
  Receipt Date: 20100928
  Transmission Date: 20110219
  Serious: Yes (Other)
  Sender: FDA-Public Use
  Company Number: None

PATIENT
  Age: 22 Year
  Sex: Female
  Weight: 58.9676 kg

DRUGS (1)
  1. MIRENA [Suspect]
     Indication: CONTRACEPTION
     Dates: start: 20100501, end: 20100831

REACTIONS (8)
  - DIZZINESS [None]
  - FATIGUE [None]
  - HORMONE LEVEL ABNORMAL [None]
  - HOT FLUSH [None]
  - MENORRHAGIA [None]
  - THROMBOSIS [None]
  - THYROID DISORDER [None]
  - VITAMIN B12 DECREASED [None]
